FAERS Safety Report 13546838 (Version 1)
Quarter: 2017Q2

REPORT INFORMATION
  Report Type: Spontaneous
  Country: SE (occurrence: SE)
  Receive Date: 20170515
  Receipt Date: 20170515
  Transmission Date: 20170830
  Serious: Yes (Other)
  Sender: FDA-Public Use
  Company Number: SE-TEVA-766374ISR

PATIENT
  Age: 61 Year
  Sex: Male

DRUGS (1)
  1. SILDENAFIL ACTAVIS [Suspect]
     Active Substance: SILDENAFIL
     Indication: ERECTILE DYSFUNCTION
     Route: 048
     Dates: start: 2015

REACTIONS (4)
  - Product substitution issue [Unknown]
  - Urinary retention [Recovered/Resolved]
  - Urethral haemorrhage [Unknown]
  - Urethral obstruction [Recovered/Resolved]

NARRATIVE: CASE EVENT DATE: 201704
